FAERS Safety Report 5470555-7 (Version None)
Quarter: 2007Q3

REPORT INFORMATION
  Report Type: 
  Country: None (occurrence: None)
  Receive Date: 20070928
  Receipt Date: 20070920
  Transmission Date: 20080115
  Serious: Yes (Hospitalization, Other)
  Sender: FDA-Public Use
  Company Number: PHBS2007JP09119

PATIENT
  Age: 22 Year
  Sex: Male
  Weight: 60 kg

DRUGS (7)
  1. NORITREN [Suspect]
     Dosage: 750 MG/DAY
     Route: 048
     Dates: start: 20070513
  2. LEXOTAN [Concomitant]
     Dosage: 8 MG/DAY
     Route: 048
     Dates: start: 20070513
  3. PAXIL [Concomitant]
     Dosage: 30 MG/DAY
     Route: 048
     Dates: start: 20070513
  4. LEVOTOMIN [Concomitant]
     Dosage: 15 MG/DAY
     Route: 048
     Dates: start: 20070513
  5. RITALIN [Suspect]
     Dosage: UNK, UNK
     Route: 048
  6. HORIZON [Concomitant]
     Indication: CONVULSION
     Route: 048
     Dates: start: 20070513, end: 20070513
  7. DIPRIVAN [Concomitant]
     Indication: SEDATION
     Dates: start: 20070513, end: 20070515

REACTIONS (4)
  - ALTERED STATE OF CONSCIOUSNESS [None]
  - DRUG TOXICITY [None]
  - INCORRECT DOSE ADMINISTERED [None]
  - VENTRICULAR ARRHYTHMIA [None]
